FAERS Safety Report 24759007 (Version 2)
Quarter: 2025Q4

REPORT INFORMATION
  Report Type: Spontaneous
  Country: JP (occurrence: JP)
  Receive Date: 20241220
  Receipt Date: 20251103
  Transmission Date: 20260119
  Serious: Yes (Hospitalization)
  Sender: ABBVIE
  Company Number: JP-ABBVIE-6052962

PATIENT

DRUGS (1)
  1. VYALEV [Suspect]
     Active Substance: FOSCARBIDOPA\FOSLEVODOPA
     Indication: Parkinson^s disease
     Route: 058

REACTIONS (3)
  - Hyperventilation [Unknown]
  - Presyncope [Unknown]
  - Subcutaneous abscess [Unknown]
